FAERS Safety Report 20363382 (Version 1)
Quarter: 2022Q1

REPORT INFORMATION
  Report Type: Spontaneous
  Country: US (occurrence: None)
  Receive Date: 20220121
  Receipt Date: 20220121
  Transmission Date: 20220423
  Serious: Yes (Life-Threatening, Hospitalization, Disabling)
  Sender: FDA-Public Use
  Company Number: None

PATIENT
  Age: 86 Year
  Sex: Male
  Weight: 74.25 kg

DRUGS (15)
  1. REGEN-COV [Suspect]
     Active Substance: CASIRIVIMAB\IMDEVIMAB
     Indication: COVID-19
     Route: 042
     Dates: start: 20211207, end: 20211207
  2. LORAZEPAM [Concomitant]
     Active Substance: LORAZEPAM
  3. ZOLPIDEM [Concomitant]
     Active Substance: ZOLPIDEM TARTRATE
  4. GABAPENTIN [Concomitant]
     Active Substance: GABAPENTIN
  5. TRAMADOL [Concomitant]
     Active Substance: TRAMADOL
  6. ATORVASTATIN [Concomitant]
     Active Substance: ATORVASTATIN
  7. LEVOTHYROXINE [Concomitant]
     Active Substance: LEVOTHYROXINE
  8. MAGNESIUM [Concomitant]
     Active Substance: MAGNESIUM
  9. VITAMIN COMPLEX [Concomitant]
  10. K-2 WITH VITAMIN D [Concomitant]
  11. VITAMIN C [Concomitant]
     Active Substance: ASCORBIC ACID
  12. PROBIOTICS NOS [Concomitant]
     Active Substance: PROBIOTICS NOS
  13. IODINE [Concomitant]
     Active Substance: IODINE
  14. UBIQUINONE/CALAMARINE OIL COMPLEX [Concomitant]
  15. VITAMIN D [Concomitant]
     Active Substance: VITAMIN D NOS

REACTIONS (5)
  - Hypoxia [None]
  - Tachycardia [None]
  - Gait disturbance [None]
  - Fall [None]
  - Pneumonia pneumococcal [None]

NARRATIVE: CASE EVENT DATE: 20211207
